FAERS Safety Report 9723036 (Version 1)
Quarter: 2013Q4

REPORT INFORMATION
  Report Type: Spontaneous
  Country: US (occurrence: None)
  Receive Date: 20131127
  Receipt Date: 20131127
  Transmission Date: 20140711
  Serious: Yes (Life-Threatening, Hospitalization)
  Sender: FDA-Public Use
  Company Number: None

PATIENT
  Age: 47 Year
  Sex: Male
  Weight: 160 kg

DRUGS (10)
  1. LISINOPRIL [Suspect]
     Indication: HYPERTENSION
     Route: 048
     Dates: end: 20131119
  2. LISINOPRIL/HCTZ [Concomitant]
  3. OXYCODONE-APAP [Concomitant]
  4. DIPHENHYDRAMINE [Concomitant]
  5. KCL 20MEQ [Concomitant]
  6. FENOFIBRATE [Concomitant]
  7. MORPHINE SULFATE [Concomitant]
  8. DIAZEPAM [Concomitant]
  9. ALLOPURINOL [Concomitant]
  10. MULTIVITAMINS [Concomitant]

REACTIONS (4)
  - Swollen tongue [None]
  - Angioedema [None]
  - Self-medication [None]
  - Drug ineffective [None]
